FAERS Safety Report 10056032 (Version 2)
Quarter: 2014Q2

REPORT INFORMATION
  Report Type: Spontaneous
  Country: TR (occurrence: TR)
  Receive Date: 20140403
  Receipt Date: 20140430
  Transmission Date: 20141212
  Serious: Yes (Other)
  Sender: FDA-Public Use
  Company Number: TR-PFIZER INC-2014092533

PATIENT
  Age: 14 Year
  Sex: Male

DRUGS (1)
  1. CONCERTA [Suspect]
     Indication: ATTENTION DEFICIT/HYPERACTIVITY DISORDER
     Dosage: 3240 MG, SINGLE
     Route: 048

REACTIONS (4)
  - Overdose [Unknown]
  - Suicide attempt [Unknown]
  - Heart rate increased [Recovering/Resolving]
  - Blood pressure increased [Recovered/Resolved]
